FAERS Safety Report 5379425-6 (Version None)
Quarter: 2007Q3

REPORT INFORMATION
  Report Type: 
  Country: None (occurrence: None)
  Receive Date: 20070703
  Receipt Date: 20070622
  Transmission Date: 20080115
  Serious: Yes (Hospitalization)
  Sender: FDA-Public Use
  Company Number: 2007S1005650

PATIENT
  Age: 77 Year
  Sex: Male

DRUGS (1)
  1. AMLODIPINE BESYLATE TABLETS (10 MG) [Suspect]
     Indication: HYPERTENSION
     Dosage: 10 MG; DAILY; ORAL
     Route: 048
     Dates: start: 20070430, end: 20070601

REACTIONS (3)
  - BLOOD PRESSURE INCREASED [None]
  - FATIGUE [None]
  - PALPITATIONS [None]
